FAERS Safety Report 16743082 (Version 1)
Quarter: 2019Q3

REPORT INFORMATION
  Report Type: Spontaneous
  Country: DE (occurrence: DE)
  Receive Date: 20190827
  Receipt Date: 20190827
  Transmission Date: 20191005
  Serious: Yes (Hospitalization, Other)
  Sender: FDA-Public Use
  Company Number: DE-AUROBINDO-AUR-APL-2018-016653

PATIENT

DRUGS (16)
  1. ARCOXIA [Suspect]
     Active Substance: ETORICOXIB
     Indication: BACK PAIN
     Dosage: 60 MILLIGRAM, ONCE A DAY, 120 MILLIGRAM DAILY
     Route: 048
     Dates: start: 20060222, end: 20060307
  2. KATADOLON [Suspect]
     Active Substance: FLUPIRTINE
     Dosage: 100 MILLIGRAM, ONCE A DAY
     Route: 048
     Dates: start: 20060131, end: 20060307
  3. IBUPROFEN FILM-COATED TABLETS [Suspect]
     Active Substance: IBUPROFEN
     Dosage: (1) UNK, ONCE A DAY, UNK, QD
     Route: 048
  4. KATADOLON S [Suspect]
     Active Substance: FLUPIRTINE
     Indication: BACK PAIN
     Dosage: 1 DOSAGE FORM DAILY
     Route: 048
  5. KATADOLON [Suspect]
     Active Substance: FLUPIRTINE
     Indication: BACK PAIN
     Dosage: 300 MILLIGRAM, ONCE A DAY, 100 MG, TID
     Route: 048
     Dates: start: 20060131, end: 20060307
  6. FEMIGOA [Concomitant]
     Active Substance: ETHINYL ESTRADIOL\LEVONORGESTREL
     Indication: CONTRACEPTION
     Dosage: UNK, DOSAGE FORM: UNSPECIFIED
     Route: 065
  7. ARCOXIA [Suspect]
     Active Substance: ETORICOXIB
     Indication: INTERVERTEBRAL DISC DISORDER
     Dosage: 120 MILLIGRAM
     Route: 048
  8. MYDOCALM [LIDOCAINE HYDROCHLORIDE/TOLPERISONE HYDROCHLORIDE] [Suspect]
     Active Substance: LIDOCAINE HYDROCHLORIDE\TOLPERISONE HYDROCHLORIDE
     Dosage: 50 MILLIGRAM, ONCE A DAY
     Route: 048
     Dates: start: 20060222, end: 20060307
  9. KATADOLON S [Suspect]
     Active Substance: FLUPIRTINE
     Indication: INTERVERTEBRAL DISC DISORDER
  10. MYDOCALM [LIDOCAINE HYDROCHLORIDE/TOLPERISONE HYDROCHLORIDE] [Suspect]
     Active Substance: LIDOCAINE HYDROCHLORIDE\TOLPERISONE HYDROCHLORIDE
     Indication: SPINAL PAIN
     Dosage: 150 MILLIGRAM, ONCE A DAY, 50 MG, 3X/DAY
     Route: 048
     Dates: start: 20060222, end: 20060307
  11. KATADOLON [Suspect]
     Active Substance: FLUPIRTINE
     Indication: SPINAL PAIN
     Dosage: 1 DOSAGE FORM, ONCE A DAY
     Route: 048
  12. IBUPROFEN FILM-COATED TABLETS [Suspect]
     Active Substance: IBUPROFEN
     Indication: INTERVERTEBRAL DISC DISORDER
     Dosage: 400 MILLIGRAM, ONCE A DAY
     Route: 048
  13. ARCOXIA [Suspect]
     Active Substance: ETORICOXIB
     Dosage: 120 MILLIGRAM, ONCE A DAY, 120 MG, 1X/DAY
     Route: 048
     Dates: start: 20060222, end: 20060307
  14. KATADOLON [Suspect]
     Active Substance: FLUPIRTINE
     Indication: INTERVERTEBRAL DISC DISORDER
     Dosage: 100 MILLIGRAM,3 HOUR
     Route: 048
     Dates: start: 20060131, end: 20060703
  15. IBUPROFEN FILM-COATED TABLETS [Suspect]
     Active Substance: IBUPROFEN
     Indication: BACK PAIN
     Dosage: 1200 MILLIGRAM, ONCE A DAY, 1200 MG, 1X/DAY
     Route: 048
  16. ARCOXIA [Suspect]
     Active Substance: ETORICOXIB
     Dosage: 240 MILLIGRAM, ONCE A DAY (120 MG, BID )
     Route: 048
     Dates: start: 20060222, end: 20060307

REACTIONS (7)
  - Transaminases increased [Recovered/Resolved with Sequelae]
  - Hepatitis [Recovering/Resolving]
  - Aspartate aminotransferase increased [Recovering/Resolving]
  - Jaundice [Recovering/Resolving]
  - Hepatic function abnormal [Recovering/Resolving]
  - Gamma-glutamyltransferase increased [Recovering/Resolving]
  - Alanine aminotransferase increased [Recovering/Resolving]

NARRATIVE: CASE EVENT DATE: 20060308
